FAERS Safety Report 5624944-8 (Version None)
Quarter: 2008Q1

REPORT INFORMATION
  Report Type: 
  Country: None (occurrence: None)
  Receive Date: 20080208
  Receipt Date: 20080125
  Transmission Date: 20080703
  Serious: Yes (Other)
  Sender: FDA-Public Use
  Company Number: 2008S1001311

PATIENT
  Age: 81 Year
  Sex: Male

DRUGS (6)
  1. C-FLOX  (CIPROFLOXACIN HYDROCHLORIDE) [Suspect]
     Indication: PSEUDOMONAS INFECTION
     Dosage: 500 MG; TABLET; ORAL; TWICE A DAY, ORAL
     Route: 048
     Dates: start: 20080118
  2. LIPITOR [Concomitant]
  3. RAMACE          (RAMIPRIL) [Concomitant]
  4. ATENOLOL [Concomitant]
  5. ALLOPURINOL [Concomitant]
  6. PLAVIX [Concomitant]

REACTIONS (2)
  - PAIN IN EXTREMITY [None]
  - TENDON PAIN [None]
